FAERS Safety Report 6413901-X (Version None)
Quarter: 2009Q4

REPORT INFORMATION
  Report Type: 
  Country: None (occurrence: None)
  Receive Date: 20091026
  Receipt Date: 20091016
  Transmission Date: 20100525
  Serious: Yes (Hospitalization)
  Sender: FDA-Public Use
  Company Number: B0598046A

PATIENT
  Age: 35 Year
  Sex: Female

DRUGS (7)
  1. SERETIDE [Suspect]
     Indication: ASTHMA
     Route: 055
  2. KALETRA [Suspect]
     Indication: HIV INFECTION
     Route: 048
  3. ALBUTEROL [Concomitant]
  4. TRUVADA [Concomitant]
     Indication: HIV INFECTION
  5. ORAL CONTRACEPTIVE [Concomitant]
  6. BECLOMETHASONE DIPROPIONATE [Concomitant]
  7. MONTELUKAST [Concomitant]

REACTIONS (6)
  - ADRENAL INSUFFICIENCY [None]
  - AMYOTROPHY [None]
  - CUSHING'S SYNDROME [None]
  - DRUG INTERACTION [None]
  - SKIN STRIAE [None]
  - WEIGHT INCREASED [None]
